FAERS Safety Report 23884399 (Version 1)
Quarter: 2024Q2

REPORT INFORMATION
  Report Type: Spontaneous
  Country: ES (occurrence: ES)
  Receive Date: 20240522
  Receipt Date: 20240522
  Transmission Date: 20240716
  Serious: Yes (Hospitalization)
  Sender: FDA-Public Use
  Company Number: ES-ROCHE-3552555

PATIENT
  Age: 77 Year
  Sex: Male
  Weight: 60 kg

DRUGS (19)
  1. CARBOPLATIN [Suspect]
     Active Substance: CARBOPLATIN
     Indication: Lung cancer metastatic
     Dosage: 380 MILLIGRAM (START DATE OF MOST RECENT DOSE OF STUDY DRUG 830 MG PRIOR TO  AE AND 350 MG PRIOR TO
     Route: 042
     Dates: start: 20230720
  2. PEMETREXED [Suspect]
     Active Substance: PEMETREXED
     Indication: Lung cancer metastatic
     Dosage: 830 MILLIGRAM (START DATE OF MOST RECENT DOSE 810 MG OF STUDY DRUG PRIOR TO SAE 18-APR-2024)
     Route: 042
     Dates: start: 20230720
  3. HYDROCHLOROTHIAZIDE [Concomitant]
     Active Substance: HYDROCHLOROTHIAZIDE
     Indication: Product used for unknown indication
     Dosage: UNK (25 CAPSULE)
     Route: 065
     Dates: start: 20170611
  4. PEMBROLIZUMAB [Concomitant]
     Active Substance: PEMBROLIZUMAB
     Indication: Lung cancer metastatic
     Dosage: UNK (START DATE OF MOST RECENT DOSE OF STUDY DRUG PRIOR TO SAE 18-APR-2024)
     Route: 065
     Dates: start: 20230720
  5. ASPIRIN [Concomitant]
     Active Substance: ASPIRIN
     Indication: Product used for unknown indication
     Dosage: UNK (100 CAPSULE)
     Route: 065
     Dates: start: 20150611
  6. ROFLUMILAST [Concomitant]
     Active Substance: ROFLUMILAST
     Indication: Product used for unknown indication
     Dosage: UNK (500 CAPSULE)
     Route: 065
     Dates: start: 20150712
  7. METOCLOPRAMIDE [Concomitant]
     Active Substance: METOCLOPRAMIDE
     Indication: Vomiting
     Dosage: 16 MILLIGRAM
     Route: 065
     Dates: start: 20240216
  8. METOCLOPRAMIDE [Concomitant]
     Active Substance: METOCLOPRAMIDE
     Indication: Nausea
  9. ATEZOLIZUMAB [Concomitant]
     Active Substance: ATEZOLIZUMAB
     Indication: Lung cancer metastatic
     Dosage: UNK (START DATE OF MOST RECENT DOSE OF STUDY DRUG PRIOR TO SAE18-APR-2024)
     Route: 065
     Dates: start: 20230720
  10. SPIRIVA [Concomitant]
     Active Substance: TIOTROPIUM BROMIDE MONOHYDRATE
     Indication: Product used for unknown indication
     Dosage: UNK
     Route: 065
     Dates: start: 20150711
  11. TIRAGOLUMAB [Concomitant]
     Active Substance: TIRAGOLUMAB
     Indication: Lung cancer metastatic
     Dosage: UNK (START DATE OF MOST RECENT DOSE OF STUDY DRUG PRIOR TO AE/SAE 18-APR-2024)
     Route: 065
     Dates: start: 20230720
  12. ALLOPURINOL [Concomitant]
     Active Substance: ALLOPURINOL
     Indication: Gout
     Dosage: UNK (300 CAPSULE)
     Route: 065
     Dates: start: 20220711
  13. ONDANSETRON [Concomitant]
     Active Substance: ONDANSETRON
     Indication: Vomiting
     Dosage: 8 MILLIGRAM
     Route: 065
     Dates: start: 20231011
  14. ONDANSETRON [Concomitant]
     Active Substance: ONDANSETRON
     Indication: Nausea
  15. RILAST [Concomitant]
     Active Substance: BUDESONIDE\FORMOTEROL
     Indication: Product used for unknown indication
     Dosage: UNK (320 INHALATION)
     Dates: start: 20150712
  16. ALBUTEROL [Concomitant]
     Active Substance: ALBUTEROL
     Indication: Product used for unknown indication
     Dosage: 100 MILLIGRAM, ONCE A DAY
     Route: 065
     Dates: start: 20150712
  17. OMEPRAZOLE [Concomitant]
     Active Substance: DONEPEZIL HYDROCHLORIDE\OMEPRAZOLE\OMEPRAZOLE MAGNESIUM
     Indication: Dyspepsia
     Dosage: UNK (20 CAPSULE)
     Route: 065
     Dates: start: 20150611
  18. FUROSEMIDE [Concomitant]
     Active Substance: FUROSEMIDE
     Indication: Oedema
     Dosage: 20 MILLIGRAM, ONCE A DAY
     Route: 065
     Dates: start: 20240418
  19. CEFDITOREN [Concomitant]
     Active Substance: CEFDITOREN
     Indication: Respiratory tract infection
     Dosage: 400 MILLIGRAM
     Route: 065
     Dates: start: 20240422, end: 20240427

REACTIONS (1)
  - Dyspnoea [Recovered/Resolved]

NARRATIVE: CASE EVENT DATE: 20240422
